FAERS Safety Report 17667632 (Version 1)
Quarter: 2020Q2

REPORT INFORMATION
  Report Type: Report from Study
  Country: None (occurrence: DE)
  Receive Date: 20200414
  Receipt Date: 20200414
  Transmission Date: 20200713
  Serious: Yes (Hospitalization)
  Sender: FDA-Public Use
  Company Number: DE-ABBVIE-19P-062-3156944-00

PATIENT
  Age: 56 Year
  Sex: Male
  Weight: 189 kg

DRUGS (36)
  1. TANTUM VERDE [Concomitant]
     Active Substance: BENZYDAMINE HYDROCHLORIDE
     Indication: PROPHYLAXIS
     Route: 065
     Dates: start: 20190128
  2. PREDNISOLONE. [Concomitant]
     Active Substance: PREDNISOLONE
     Indication: PROPHYLACTIC CHEMOTHERAPY
     Route: 065
     Dates: start: 20190218
  3. RITUXIMAB. [Concomitant]
     Active Substance: RITUXIMAB
     Indication: MANTLE CELL LYMPHOMA
     Route: 065
     Dates: start: 20190128, end: 20190517
  4. PREDNISONE. [Concomitant]
     Active Substance: PREDNISONE
     Indication: MANTLE CELL LYMPHOMA
     Route: 065
     Dates: start: 20190128, end: 20190517
  5. ETOPOSIDE. [Concomitant]
     Active Substance: ETOPOSIDE
     Indication: MANTLE CELL LYMPHOMA
     Route: 065
     Dates: start: 20190615
  6. RAMIPRIL. [Concomitant]
     Active Substance: RAMIPRIL
     Indication: HYPERTENSION
     Route: 065
     Dates: start: 20190402
  7. CYTARABINE. [Concomitant]
     Active Substance: CYTARABINE
     Indication: MANTLE CELL LYMPHOMA
     Route: 065
     Dates: start: 20190615
  8. PARACETAMOL [Concomitant]
     Active Substance: ACETAMINOPHEN
     Indication: PROPHYLAXIS
     Route: 065
     Dates: start: 20190128
  9. CARMUSTINE. [Concomitant]
     Active Substance: CARMUSTINE
     Indication: MANTLE CELL LYMPHOMA
     Route: 065
     Dates: start: 20190615
  10. GRANISETRON [Concomitant]
     Active Substance: GRANISETRON
     Indication: PROPHYLACTIC CHEMOTHERAPY
     Route: 065
     Dates: start: 20190129
  11. NEULASTA [Concomitant]
     Active Substance: PEGFILGRASTIM
     Indication: PROPHYLACTIC CHEMOTHERAPY
     Route: 065
     Dates: start: 20190224
  12. LERCANIDIPINE [Concomitant]
     Active Substance: LERCANIDIPINE
     Indication: HYPERTENSION
     Route: 065
     Dates: start: 20190401
  13. IBRUTINIB [Suspect]
     Active Substance: IBRUTINIB
     Indication: MANTLE CELL LYMPHOMA
     Route: 048
     Dates: start: 20190129, end: 201904
  14. CYTARABINE. [Concomitant]
     Active Substance: CYTARABINE
     Indication: MANTLE CELL LYMPHOMA
     Route: 065
     Dates: start: 20190128, end: 20190517
  15. BEPANTHEN [Concomitant]
     Indication: PROPHYLAXIS
     Route: 065
     Dates: start: 20190128
  16. MELPHALAN. [Concomitant]
     Active Substance: MELPHALAN
     Indication: MANTLE CELL LYMPHOMA
     Route: 065
     Dates: start: 20190615
  17. RANITIDINE. [Concomitant]
     Active Substance: RANITIDINE
     Indication: PROPHYLACTIC CHEMOTHERAPY
     Route: 065
     Dates: start: 20190218
  18. CISPLATIN. [Concomitant]
     Active Substance: CISPLATIN
     Indication: MANTLE CELL LYMPHOMA
     Route: 065
     Dates: start: 20190128, end: 20190517
  19. VINCRISTINE [Concomitant]
     Active Substance: VINCRISTINE
     Indication: MANTLE CELL LYMPHOMA
     Route: 065
     Dates: start: 20190128, end: 20190517
  20. PANTOPRAZOLE [Concomitant]
     Active Substance: PANTOPRAZOLE
     Indication: PROPHYLAXIS
     Route: 065
     Dates: start: 20190128
  21. ACICLOVIR [Concomitant]
     Active Substance: ACYCLOVIR
     Indication: PROPHYLAXIS
     Route: 065
     Dates: start: 20190128
  22. METOPROLOL SUCCINATE. [Concomitant]
     Active Substance: METOPROLOL SUCCINATE
     Indication: HYPERTENSION
     Route: 065
     Dates: start: 20190404
  23. IBRUTINIB [Suspect]
     Active Substance: IBRUTINIB
     Route: 048
     Dates: start: 20190423, end: 20190506
  24. DEXAMETHASONE. [Concomitant]
     Active Substance: DEXAMETHASONE
     Indication: MANTLE CELL LYMPHOMA
     Route: 065
     Dates: start: 20190128, end: 20190517
  25. ALLOPURINOL. [Concomitant]
     Active Substance: ALLOPURINOL
     Indication: HYPERURICAEMIA
     Route: 065
  26. CIPROFLOXACIN. [Concomitant]
     Active Substance: CIPROFLOXACIN
     Indication: LEUKOPENIA
     Route: 065
     Dates: start: 20190213
  27. CLEMASTINE [Concomitant]
     Active Substance: CLEMASTINE
     Indication: PROPHYLACTIC CHEMOTHERAPY
     Route: 065
     Dates: start: 20190218
  28. AMPHO MORONAL [Concomitant]
     Active Substance: AMPHOTERICIN B
     Indication: PROPHYLAXIS
     Route: 065
     Dates: start: 20190128
  29. COTRIM FORTE [Concomitant]
     Active Substance: SULFAMETHOXAZOLE\TRIMETHOPRIM
     Indication: PROPHYLAXIS
     Route: 065
     Dates: start: 20190128
  30. APREPITANT. [Concomitant]
     Active Substance: APREPITANT
     Indication: PROPHYLACTIC CHEMOTHERAPY
     Route: 065
     Dates: start: 20190129
  31. CHLORTALIDONE [Concomitant]
     Active Substance: CHLORTHALIDONE
     Indication: HYPERTENSION
     Route: 065
     Dates: start: 20190404
  32. CYCLOPHOSPHAMIDE. [Concomitant]
     Active Substance: CYCLOPHOSPHAMIDE
     Indication: MANTLE CELL LYMPHOMA
     Route: 065
     Dates: start: 20190128, end: 20190517
  33. DOXORUBICIN [Concomitant]
     Active Substance: DOXORUBICIN
     Indication: MANTLE CELL LYMPHOMA
     Route: 065
     Dates: start: 20190128, end: 20190517
  34. DEXAPOS [Concomitant]
     Indication: PROPHYLACTIC CHEMOTHERAPY
     Route: 065
     Dates: start: 20190220
  35. OXALIPLATIN. [Concomitant]
     Active Substance: OXALIPLATIN
     Indication: MANTLE CELL LYMPHOMA
     Route: 065
     Dates: start: 20190128, end: 20190517
  36. CLEMASTINE [Concomitant]
     Active Substance: CLEMASTINE
     Route: 065
     Dates: start: 20190128

REACTIONS (1)
  - Gastrointestinal haemorrhage [Recovered/Resolved]

NARRATIVE: CASE EVENT DATE: 20190812
